FAERS Safety Report 7525592-5 (Version None)
Quarter: 2011Q2

REPORT INFORMATION
  Report Type: 
  Country: None (occurrence: None)
  Receive Date: 20110606
  Receipt Date: 20110523
  Transmission Date: 20111010
  Serious: Yes (Other)
  Sender: FDA-Public Use
  Company Number: PHHY2011US44525

PATIENT
  Sex: Female

DRUGS (6)
  1. ZOMETA [Suspect]
  2. NORTRIPTYLINE HYDROCHLORIDE [Concomitant]
     Dosage: 75 MG, BID
  3. ACIPHEX [Concomitant]
  4. LORISTA H (LOSARTAN/HYDROCHLOROTHIAZIDE) [Concomitant]
  5. FEMARA [Concomitant]
  6. CLORAZEPATE DIPOTASSIUM [Concomitant]
     Dosage: 3.75 MG, UNK

REACTIONS (2)
  - FALL [None]
  - MUSCULAR WEAKNESS [None]
